FAERS Safety Report 15720854 (Version 3)
Quarter: 2018Q4

REPORT INFORMATION
  Report Type: Spontaneous
  Country: US (occurrence: US)
  Receive Date: 20181214
  Receipt Date: 20181224
  Transmission Date: 20190205
  Serious: Yes (Other)
  Sender: FDA-Public Use
  Company Number: US-AMGEN-USASP2018177139

PATIENT
  Age: 23 Year
  Sex: Male
  Weight: 116 kg

DRUGS (2)
  1. NEULASTA [Suspect]
     Active Substance: PEGFILGRASTIM
     Indication: PRODUCT USED FOR UNKNOWN INDICATION
     Dosage: 6 MG, UNK
     Route: 058
     Dates: start: 20181130
  2. CEPHALEXIN. [Concomitant]
     Active Substance: CEPHALEXIN
     Indication: INSTILLATION SITE INFECTION
     Dosage: 1000 MG, FOR EIGHT DAYS
     Dates: start: 20181130, end: 20181203

REACTIONS (1)
  - Injection site urticaria [Recovered/Resolved]

NARRATIVE: CASE EVENT DATE: 20181203
